FAERS Safety Report 24916195 (Version 1)
Quarter: 2025Q1

REPORT INFORMATION
  Report Type: Spontaneous
  Country: US (occurrence: US)
  Receive Date: 20250203
  Receipt Date: 20250203
  Transmission Date: 20250408
  Serious: Yes (Other)
  Sender: BAYER HEALTHCARE LLC
  Company Number: US-BAYER-2025A010622

PATIENT
  Age: 39 Year
  Sex: Female

DRUGS (4)
  1. CHILDREN CLARITIN ALLERGY [Suspect]
     Active Substance: LORATADINE
     Indication: Hypersensitivity
     Route: 048
     Dates: start: 20250113, end: 20250113
  2. CHILDREN CLARITIN ALLERGY [Suspect]
     Active Substance: LORATADINE
     Indication: Nasopharyngitis
  3. POTASSIUM [Concomitant]
     Active Substance: POTASSIUM
  4. AMILORIDE [Concomitant]
     Active Substance: AMILORIDE

REACTIONS (6)
  - Arrhythmia [Recovered/Resolved]
  - Eyelid ptosis [Recovered/Resolved]
  - Muscle tightness [Recovered/Resolved]
  - Tachycardia [Recovered/Resolved]
  - Fatigue [Recovered/Resolved]
  - Incorrect dose administered [None]

NARRATIVE: CASE EVENT DATE: 20250113
